FAERS Safety Report 7911349-X (Version None)
Quarter: 2011Q4

REPORT INFORMATION
  Report Type: 
  Country: None (occurrence: None)
  Receive Date: 20111109
  Receipt Date: 20111025
  Transmission Date: 20120403
  Serious: Yes (Other)
  Sender: FDA-Public Use
  Company Number: FK201102502

PATIENT
  Age: 63 Year
  Sex: Female

DRUGS (8)
  1. SCULPTRA (POLYLACTIC ACID) (POLYLACTIC ACID) [Suspect]
     Indication: SKIN WRINKLING
  2. LIDOCAINE [Suspect]
     Indication: SKIN WRINKLING
     Dates: start: 20110301
  3. LIDOCAINE [Suspect]
     Indication: SKIN WRINKLING
     Dates: start: 20110501
  4. LIDOCAINE [Suspect]
     Indication: SKIN WRINKLING
     Dates: start: 20110701
  5. LIDOCAINE [Suspect]
     Indication: SKIN WRINKLING
     Dates: start: 20111011
  6. LIDOCAINE [Suspect]
     Indication: SKIN WRINKLING
     Dates: start: 20110906
  7. PROCAINE (PROCAINE-) (PROCAINE) [Concomitant]
  8. PARAFFIN SOFT (PARAFFIN SOFT) (PARAFFIN SOFT) [Concomitant]

REACTIONS (8)
  - SWELLING [None]
  - INJECTION SITE PRURITUS [None]
  - PAIN [None]
  - INJECTION SITE SWELLING [None]
  - UNEVALUABLE EVENT [None]
  - INJECTION SITE PAIN [None]
  - INJECTION SITE WARMTH [None]
  - INJECTION SITE ERYTHEMA [None]
